FAERS Safety Report 12749668 (Version 1)
Quarter: 2016Q3

REPORT INFORMATION
  Report Type: Spontaneous
  Country: US (occurrence: US)
  Receive Date: 20160915
  Receipt Date: 20160915
  Transmission Date: 20161109
  Serious: No
  Sender: FDA-Public Use
  Company Number: None

PATIENT
  Age: 54 Year
  Sex: Female

DRUGS (1)
  1. URSODIOL. [Suspect]
     Active Substance: URSODIOL
     Indication: LIVER TRANSPLANT
     Route: 048
     Dates: start: 20160623

REACTIONS (4)
  - Urinary tract infection [None]
  - Dizziness [None]
  - Alopecia [None]
  - Product substitution issue [None]
